FAERS Safety Report 8022316-2 (Version None)
Quarter: 2011Q4

REPORT INFORMATION
  Report Type: 
  Country: None (occurrence: None)
  Receive Date: 20111230
  Receipt Date: 20111216
  Transmission Date: 20120403
  Serious: Yes (Death, Hospitalization, Disabling, Other)
  Sender: FDA-Public Use
  Company Number: 2011P1004654

PATIENT
  Age: 66 Year
  Sex: Female

DRUGS (1)
  1. FENTANYL [Suspect]
     Indication: OROPHARYNGEAL BLISTERING
     Dates: start: 20100803

REACTIONS (9)
  - PRODUCT QUALITY ISSUE [None]
  - PAIN [None]
  - RESPIRATORY RATE DECREASED [None]
  - ANXIETY [None]
  - INCORRECT DRUG ADMINISTRATION RATE [None]
  - UNRESPONSIVE TO STIMULI [None]
  - HYPOXIC-ISCHAEMIC ENCEPHALOPATHY [None]
  - DEFORMITY [None]
  - DISEASE COMPLICATION [None]
